FAERS Safety Report 12093641 (Version 3)
Quarter: 2016Q2

REPORT INFORMATION
  Report Type: Spontaneous
  Country: US (occurrence: US)
  Receive Date: 20160219
  Receipt Date: 20160407
  Transmission Date: 20160815
  Serious: No
  Sender: FDA-Public Use
  Company Number: US-PFIZER INC-2016088935

PATIENT
  Age: 52 Year
  Sex: Female
  Weight: 97.51 kg

DRUGS (15)
  1. FLUOXETINE HCL [Concomitant]
     Active Substance: FLUOXETINE HYDROCHLORIDE
     Dosage: 20 MG, 1X/DAY
     Route: 048
  2. MOTRIN [Concomitant]
     Active Substance: IBUPROFEN
     Dosage: 600 MG, DAILY
     Route: 048
  3. FLUTICASONE PROPIONATE. [Concomitant]
     Active Substance: FLUTICASONE PROPIONATE
     Dosage: 50 UG (/ACT), AS NEEDED
     Route: 045
  4. BUSPIRONE HCL [Concomitant]
     Active Substance: BUSPIRONE HYDROCHLORIDE
     Dosage: 7.5 MG, AS NEEDED (15MG TABLET 1/2 ORAL Q-BID PRN)
     Route: 048
  5. AMITRIPTYLINE HCL [Concomitant]
     Active Substance: AMITRIPTYLINE
     Dosage: 25 MG, AS NEEDED (NIGHTLY)
     Route: 048
  6. HYDROCODONE BITARTRATE AND ACETAMINOPHEN [Concomitant]
     Active Substance: ACETAMINOPHEN\HYDROCODONE BITARTRATE
     Dosage: UNK UNK (HYDROCODONE BITARTRATE 5MG AND ACETAMINOPHEN 500MG), AS NEEDED
     Route: 048
  7. EVAMIST [Concomitant]
     Active Substance: ESTRADIOL
     Dosage: 1.53 MG (/SPRAY AS DIRECTED), UNK
     Route: 062
  8. XANAX [Suspect]
     Active Substance: ALPRAZOLAM
     Indication: SLEEP DISORDER
     Dosage: UNK
  9. PROPANOLOL HCL [Suspect]
     Active Substance: PROPRANOLOL HYDROCHLORIDE
     Indication: TREMOR
     Dosage: 80 MG, 2X/DAY
     Route: 048
  10. CHANTIX [Concomitant]
     Active Substance: VARENICLINE TARTRATE
     Dosage: 1 MG, UNK (AS DIRECTED)
     Route: 048
  11. LYRICA [Suspect]
     Active Substance: PREGABALIN
     Dosage: 100 MG, 3X/DAY
     Route: 048
  12. AMBIEN [Suspect]
     Active Substance: ZOLPIDEM TARTRATE
     Indication: DEPRESSION
     Dosage: UNK
  13. BOTOX [Suspect]
     Active Substance: ONABOTULINUMTOXINA
     Dosage: UNK
  14. LISINOPRIL. [Concomitant]
     Active Substance: LISINOPRIL
     Indication: HYPERTENSION
     Dosage: 10 MG, 1X/DAY
     Route: 048
  15. MIGRANAL [Concomitant]
     Active Substance: DIHYDROERGOTAMINE MESYLATE
     Dosage: 4 MG/ML, 2X/DAY
     Route: 045

REACTIONS (29)
  - Paraesthesia [Unknown]
  - Nocturia [Unknown]
  - Body temperature increased [Unknown]
  - Headache [Unknown]
  - Increased upper airway secretion [Unknown]
  - Crying [Unknown]
  - Malaise [Unknown]
  - Fibromyalgia [Unknown]
  - Migraine [Unknown]
  - Pain [Unknown]
  - Ear pain [Unknown]
  - Nasal congestion [Unknown]
  - Productive cough [Unknown]
  - Neck pain [Unknown]
  - Fatigue [Unknown]
  - Tremor [Unknown]
  - Pain of skin [Unknown]
  - Fungal infection [Unknown]
  - Pruritus [Unknown]
  - Flushing [Unknown]
  - Excessive cerumen production [Unknown]
  - Temperature intolerance [Unknown]
  - Ear infection [Unknown]
  - Umbilical hernia [Unknown]
  - Asthenia [Unknown]
  - Skin burning sensation [Unknown]
  - Insomnia [Unknown]
  - Ear discomfort [Unknown]
  - Dental pulp disorder [Unknown]
